FAERS Safety Report 9841733 (Version 1)
Quarter: 2014Q1

REPORT INFORMATION
  Report Type: Spontaneous
  Country: US (occurrence: US)
  Receive Date: 20140124
  Receipt Date: 20140124
  Transmission Date: 20141002
  Serious: Yes (Hospitalization, Other)
  Sender: FDA-Public Use
  Company Number: US-JNJFOC-20140111094

PATIENT
  Age: 56 Year
  Sex: Male
  Weight: 76 kg

DRUGS (10)
  1. XARELTO [Suspect]
     Indication: PULMONARY EMBOLISM
     Dosage: AT BEDTIME
     Route: 048
     Dates: start: 2013
  2. XARELTO [Suspect]
     Indication: DEEP VEIN THROMBOSIS
     Dosage: AT BEDTIME
     Route: 048
     Dates: start: 2013
  3. ASPIRIN [Suspect]
     Indication: PRODUCT USED FOR UNKNOWN INDICATION
     Dosage: AM
     Route: 048
  4. PLAVIX [Suspect]
     Indication: PRODUCT USED FOR UNKNOWN INDICATION
     Dosage: AM
     Route: 048
  5. ALBUTEROL INHALERS [Concomitant]
     Route: 055
  6. ATORVASTATIN [Concomitant]
     Route: 048
  7. CARVEDILOL [Concomitant]
     Route: 048
  8. MUCINEX [Concomitant]
     Route: 048
  9. SPIRIVA [Concomitant]
     Dosage: 1 PUFF DAILY INHALER
     Route: 055
  10. LISINOPRIL [Concomitant]
     Route: 048

REACTIONS (4)
  - Pneumonia [Unknown]
  - International normalised ratio increased [Not Recovered/Not Resolved]
  - Prothrombin time prolonged [Not Recovered/Not Resolved]
  - Epistaxis [Not Recovered/Not Resolved]
